FAERS Safety Report 4741717-9 (Version None)
Quarter: 2005Q3

REPORT INFORMATION
  Report Type: 
  Country: None (occurrence: None)
  Receive Date: 20050804
  Receipt Date: 20050408
  Transmission Date: 20060218
  Serious: No
  Sender: FDA-Public Use
  Company Number: WAES 0504USA01179

PATIENT
  Sex: Female

DRUGS (4)
  1. EMEND [Suspect]
     Indication: PROPHYLAXIS OF NAUSEA AND VOMITING
     Dosage: 125 MG/DAILY/PO; 80 MG/DAILY/PO
     Route: 048
  2. EMEND [Suspect]
     Indication: PROPHYLAXIS OF NAUSEA AND VOMITING
     Dosage: 125 MG/DAILY/PO; 80 MG/DAILY/PO
     Route: 048
  3. ZOFRAN [Concomitant]
  4. DEXAMETHASONE [Concomitant]

REACTIONS (1)
  - SALIVARY HYPERSECRETION [None]
